FAERS Safety Report 5068554-2 (Version None)
Quarter: 2006Q3

REPORT INFORMATION
  Report Type: 
  Country: None (occurrence: None)
  Receive Date: 20060802
  Receipt Date: 20051128
  Transmission Date: 20061208
  Serious: No
  Sender: FDA-Public Use
  Company Number: US-BRISTOL-MYERS SQUIBB COMPANY-13194972

PATIENT
  Age: 68 Year
  Sex: Male
  Weight: 73 kg

DRUGS (4)
  1. COUMADIN [Suspect]
     Indication: ATRIAL FIBRILLATION
     Dosage: 5 MG DAILY FOUR TIMES A WEEK 7.5MG THREE TIMES A WEEK
     Dates: start: 20050801
  2. ACTOS [Concomitant]
  3. METOPROLOL [Concomitant]
  4. LIBRIUM [Concomitant]

REACTIONS (2)
  - STOMATITIS [None]
  - TEMPERATURE INTOLERANCE [None]
